FAERS Safety Report 5141154-1 (Version None)
Quarter: 2006Q4

REPORT INFORMATION
  Report Type: 
  Country: None (occurrence: None)
  Receive Date: 20061026
  Receipt Date: 20061017
  Transmission Date: 20070319
  Serious: Yes (Congenital Anomaly, Other)
  Sender: FDA-Public Use
  Company Number: DE-2006-021733

PATIENT
  Age: 1 Month
  Sex: Male

DRUGS (1)
  1. BETAFERON(INTERFERON BETA - 1B) INJECTION, 250UG [Suspect]
     Indication: MULTIPLE SCLEROSIS
     Dates: start: 20051013, end: 20051215

REACTIONS (9)
  - CENTRAL NERVOUS SYSTEM LESION [None]
  - CONVULSION NEONATAL [None]
  - DEVELOPMENTAL DELAY [None]
  - DRUG EXPOSURE DURING PREGNANCY [None]
  - HYPOTONIA NEONATAL [None]
  - MUSCLE SPASMS [None]
  - PACHYGYRIA [None]
  - PREMATURE BABY [None]
  - ULTRASOUND SCAN ABNORMAL [None]
